FAERS Safety Report 25912360 (Version 1)
Quarter: 2025Q4

REPORT INFORMATION
  Report Type: Other
  Country: GB (occurrence: GB)
  Receive Date: 20251013
  Receipt Date: 20251013
  Transmission Date: 20260118
  Serious: Yes (Life-Threatening, Other)
  Sender: IPCA
  Company Number: GB-MHRA-EMIS-9890-03f46754-6314-4d68-86cb-257ea37800c8

PATIENT

DRUGS (6)
  1. ALLOPURINOL [Suspect]
     Active Substance: ALLOPURINOL
     Indication: Gout
     Dosage: ONE TABLET EACH DAY WITH FOOD FOR 4 WEEKS, THEN INCREASE TO 2 TABLETS EACH DAY FOR 4 WEEKSONE TO BE
     Route: 065
     Dates: start: 20250508, end: 20250609
  2. NAPROXEN [Concomitant]
     Active Substance: NAPROXEN
     Indication: Gout
     Dosage: ONE TO BE TAKEN THREE TIMES A DAY
     Route: 065
     Dates: start: 20250410, end: 20250509
  3. OMEPRAZOLE [Concomitant]
     Active Substance: OMEPRAZOLE
     Indication: Gout
     Dosage: ONE TO BE TAKEN EACH DAY
     Route: 065
     Dates: start: 20250410, end: 20250523
  4. COLCHICINE [Concomitant]
     Active Substance: COLCHICINE
     Indication: Gout
     Dosage: ONE TO BE TAKEN TWO TO FOUR TIMES A DAY UNTIL SYMPTOMS RELIEVED. MAXIMUM 6 MG (TWELVE TABLETS) PER C
     Route: 065
     Dates: start: 20250508
  5. PENICILLIN V [Concomitant]
     Active Substance: PENICILLIN V
     Indication: Product used for unknown indication
     Dosage: TAKE TWO TABLETS FOUR TIMES A DAY
     Route: 065
     Dates: start: 20250528
  6. EMOLLIN AEROSOL SPRAY (C D MEDICAL LTD) [Concomitant]
     Indication: Product used for unknown indication
     Dosage: WHEN REQUIRED - EVERY 2 HOURS
     Route: 065
     Dates: start: 20250609

REACTIONS (2)
  - Stevens-Johnson syndrome [Unknown]
  - Anaphylactic reaction [Unknown]

NARRATIVE: CASE EVENT DATE: 20250602
